FAERS Safety Report 5774218-X (Version None)
Quarter: 2008Q2

REPORT INFORMATION
  Report Type: 
  Country: None (occurrence: None)
  Receive Date: 20080601
  Receipt Date: 20080316
  Transmission Date: 20081010
  Serious: No
  Sender: FDA-Public Use
  Company Number: US200803003734

PATIENT
  Age: 42 Year
  Sex: Female
  Weight: 83.9 kg

DRUGS (11)
  1. BYETTA [Suspect]
     Indication: TYPE 2 DIABETES MELLITUS
     Dosage: 5 UG, 2/D, SUBCUTANEOUS ; 5 UG, 2/D, SUBCUTANEOUS
     Route: 058
     Dates: start: 20071101, end: 20071201
  2. BYETTA [Suspect]
     Indication: TYPE 2 DIABETES MELLITUS
     Dosage: 5 UG, 2/D, SUBCUTANEOUS ; 5 UG, 2/D, SUBCUTANEOUS
     Route: 058
     Dates: start: 20080101
  3. AMARYL [Concomitant]
  4. LEVOTHYROXINE SODIUM [Concomitant]
  5. DIOVAN D (HYDROCHLOROTHIAZIDE, VALSARTAN) [Concomitant]
  6. CALCIUM (CALCIUM) [Concomitant]
  7. MAGNESIUM (MAGNESIUM) [Concomitant]
  8. FISH OIL (FISH OIL) [Concomitant]
  9. ASPIRIN [Concomitant]
  10. MULTIIVITAMIN (VITAMINS NOS) [Concomitant]
  11. NOVOLOG [Concomitant]

REACTIONS (10)
  - BLOOD GLUCOSE DECREASED [None]
  - BLOOD GLUCOSE FLUCTUATION [None]
  - BLOOD PRESSURE INCREASED [None]
  - COLD SWEAT [None]
  - DIZZINESS [None]
  - HEART RATE INCREASED [None]
  - HYPERVENTILATION [None]
  - INJECTION SITE INFECTION [None]
  - VISUAL DISTURBANCE [None]
  - VOMITING [None]
